FAERS Safety Report 8972168 (Version 1)
Quarter: 2012Q4

REPORT INFORMATION
  Report Type: Spontaneous
  Country: US (occurrence: None)
  Receive Date: 20121211
  Receipt Date: 20121211
  Transmission Date: 20130627
  Serious: Yes (Other)
  Sender: FDA-Public Use
  Company Number: AUR-APL-2012-05199

PATIENT
  Age: 66 Year

DRUGS (3)
  1. FLUOXETINE [Suspect]
     Indication: MOOD DISORDER NOS
  2. LEVODOPA + CARBIDOPA [Concomitant]
  3. TRAZODONE (TRAZODONE) [Concomitant]

REACTIONS (7)
  - Anxiety [None]
  - Depression [None]
  - Movement disorder [None]
  - Tremor [None]
  - Gait disturbance [None]
  - Impaired work ability [None]
  - Dyskinesia [None]
